FAERS Safety Report 5336924-0 (Version None)
Quarter: 2007Q2

REPORT INFORMATION
  Report Type: 
  Country: None (occurrence: None)
  Receive Date: 20070315
  Receipt Date: 20060511
  Transmission Date: 20071010
  Serious: Yes (Other)
  Sender: FDA-Public Use
  Company Number: PHEH2006US06338

PATIENT
  Age: 50 Year
  Sex: Female
  Weight: 77.1 kg

DRUGS (4)
  1. TRILEPTAL [Suspect]
     Indication: CONVULSION
     Dosage: 300 MG, TID
     Dates: start: 20050101, end: 20060510
  2. WELLBUTRIN [Concomitant]
  3. ZYRTEC [Concomitant]
  4. PROTONIX [Concomitant]

REACTIONS (4)
  - ASTHENIA [None]
  - HYPONATRAEMIA [None]
  - MYALGIA [None]
  - OEDEMA [None]
